FAERS Safety Report 22630555 (Version 1)
Quarter: 2023Q2

REPORT INFORMATION
  Report Type: Report from Study
  Country: US (occurrence: US)
  Receive Date: 20230622
  Receipt Date: 20230622
  Transmission Date: 20230721
  Serious: Yes (Other)
  Sender: FDA-Public Use
  Company Number: US-BAUSCH-BL-2023-006532

PATIENT
  Age: 52 Year
  Sex: Male

DRUGS (1)
  1. SILIQ [Suspect]
     Active Substance: BRODALUMAB
     Indication: Psoriasis
     Dosage: INJECT 210MG SUBCUTANEOUSLY ON WEEK 0,1 AND 2 AS DIRECTED.
     Route: 058
     Dates: start: 202302

REACTIONS (5)
  - Lymphadenopathy [Unknown]
  - Psoriasis [Unknown]
  - Disease recurrence [Unknown]
  - Feeding disorder [Unknown]
  - Patient dissatisfaction with treatment [Unknown]

NARRATIVE: CASE EVENT DATE: 20230101
